FAERS Safety Report 10211566 (Version 1)
Quarter: 2014Q2

REPORT INFORMATION
  Report Type: Spontaneous
  Country: US (occurrence: US)
  Receive Date: 20140602
  Receipt Date: 20140602
  Transmission Date: 20141212
  Serious: Yes (Other)
  Sender: FDA-Public Use
  Company Number: US-PFIZER INC-2014150544

PATIENT
  Sex: Female

DRUGS (1)
  1. LYRICA [Suspect]
     Dosage: 25 MG, UNK
     Route: 048

REACTIONS (10)
  - Drug dependence [Unknown]
  - Head discomfort [Unknown]
  - Dizziness [Unknown]
  - Memory impairment [Unknown]
  - Tremor [Unknown]
  - Paraesthesia [Unknown]
  - Hypoaesthesia [Unknown]
  - Dyspnoea [Unknown]
  - Dysphagia [Unknown]
  - Intentional product misuse [Unknown]
